FAERS Safety Report 6289045-7 (Version None)
Quarter: 2009Q3

REPORT INFORMATION
  Report Type: 
  Country: None (occurrence: None)
  Receive Date: 20090727
  Receipt Date: 20090714
  Transmission Date: 20100115
  Serious: Yes (Death)
  Sender: FDA-Public Use
  Company Number: IND1-NL-2009-0004

PATIENT
  Age: 86 Year
  Sex: Male

DRUGS (2)
  1. INDOCIN [Suspect]
     Indication: PAIN
     Dosage: RECTAL, 100MG, BID, RECTAL
     Route: 054
     Dates: start: 20090612, end: 20090619
  2. INDOCIN [Suspect]
     Indication: PAIN
     Dosage: RECTAL, 100MG, BID, RECTAL
     Route: 054
     Dates: start: 20090625, end: 20090625

REACTIONS (1)
  - RECTAL HAEMORRHAGE [None]
